FAERS Safety Report 8955130 (Version 4)
Quarter: 2013Q1

REPORT INFORMATION
  Report Type: Spontaneous
  Country: US (occurrence: US)
  Receive Date: 20121210
  Receipt Date: 20130228
  Transmission Date: 20140127
  Serious: Yes (Hospitalization, Other)
  Sender: FDA-Public Use
  Company Number: US-BIOGENIDEC-2012BI057628

PATIENT
  Age: 62 Year
  Sex: Female

DRUGS (1)
  1. TYSABRI [Suspect]
     Indication: MULTIPLE SCLEROSIS
     Route: 042
     Dates: start: 20090514

REACTIONS (17)
  - Pyrexia [Recovered/Resolved]
  - Staphylococcal infection [Recovered/Resolved]
  - Road traffic accident [Recovered/Resolved]
  - Device breakage [Recovered/Resolved]
  - Anaphylactic shock [Recovered/Resolved]
  - Chest pain [Unknown]
  - Arthralgia [Unknown]
  - General symptom [Unknown]
  - Skin irritation [Unknown]
  - Fall [Recovered/Resolved]
  - Muscular weakness [Recovered/Resolved]
  - Chest discomfort [Recovered/Resolved]
  - Foot fracture [Recovered/Resolved]
  - Memory impairment [Unknown]
  - Poor venous access [Recovered/Resolved]
  - Sensation of heaviness [Recovered/Resolved]
  - Fluid retention [Recovered/Resolved]
